FAERS Safety Report 8782708 (Version 1)
Quarter: 2012Q4

REPORT INFORMATION
  Report Type: Report from Study
  Country: US (occurrence: US)
  Receive Date: 20120913
  Receipt Date: 20120913
  Transmission Date: 20130627
  Serious: No
  Sender: FDA-Public Use
  Company Number: US-VERTEX PHARMACEUTICAL INC.-AE-2012-010130

PATIENT
  Sex: Female

DRUGS (8)
  1. INCIVEK [Suspect]
     Indication: HEPATITIS C
     Route: 048
  2. RIBAPAK [Concomitant]
     Indication: HEPATITIS C
  3. PEG-INTRON KIT [Concomitant]
     Indication: HEPATITIS C
  4. AMLODIPINE [Concomitant]
  5. PREMARIN [Concomitant]
  6. LYRICA [Concomitant]
  7. CALCIUM D [Concomitant]
  8. LIQUID B12 [Concomitant]

REACTIONS (2)
  - Fatigue [Unknown]
  - Anaemia [Unknown]
